FAERS Safety Report 16591602 (Version 3)
Quarter: 2019Q3

REPORT INFORMATION
  Report Type: Spontaneous
  Country: US (occurrence: US)
  Receive Date: 20190718
  Receipt Date: 20190829
  Transmission Date: 20191004
  Serious: Yes (Hospitalization, Other)
  Sender: FDA-Public Use
  Company Number: US-PFIZER INC-2019303088

PATIENT
  Age: 11 Year
  Sex: Male
  Weight: 34.93 kg

DRUGS (1)
  1. GENOTROPIN MQ [Suspect]
     Active Substance: SOMATROPIN
     Indication: GROWTH HORMONE DEFICIENCY
     Dosage: 0.6 MG, 1X/DAY, (NIGHTLY BY INJECTION ROTATE BETWEEN UPPER ARM, THIGH BUTTOCKS, RIGHT + LEFT)
     Route: 030
     Dates: start: 2016

REACTIONS (6)
  - Intracranial pressure increased [Unknown]
  - Thyroid hormones decreased [Recovered/Resolved]
  - Seizure cluster [Recovered/Resolved]
  - Pneumonia aspiration [Recovered/Resolved]
  - Hyponatraemia [Recovered/Resolved]
  - Drug ineffective [Unknown]

NARRATIVE: CASE EVENT DATE: 20190718
